FAERS Safety Report 7366003-2 (Version None)
Quarter: 2011Q1

REPORT INFORMATION
  Report Type: 
  Country: None (occurrence: None)
  Receive Date: 20110322
  Receipt Date: 20110316
  Transmission Date: 20110831
  Serious: Yes (Hospitalization)
  Sender: FDA-Public Use
  Company Number: FR-SANOFI-AVENTIS-2011SA015788

PATIENT
  Age: 71 Year
  Sex: Female

DRUGS (8)
  1. EUPRESSYL [Concomitant]
     Route: 048
  2. ZOLPIDEM [Concomitant]
     Route: 048
  3. LASIX [Suspect]
     Route: 048
  4. PRAVASTATIN [Concomitant]
     Route: 048
  5. BROMAZEPAM [Concomitant]
     Route: 048
  6. PREVISCAN [Suspect]
     Route: 048
     Dates: start: 20101201, end: 20101231
  7. PREVISCAN [Suspect]
     Indication: ATRIAL FIBRILLATION
     Route: 048
     Dates: end: 20101201
  8. DIFFU K [Concomitant]
     Route: 048
     Dates: end: 20110107

REACTIONS (3)
  - EPISTAXIS [None]
  - ABDOMINAL WALL HAEMATOMA [None]
  - INTERNATIONAL NORMALISED RATIO INCREASED [None]
